FAERS Safety Report 14407118 (Version 2)
Quarter: 2018Q1

REPORT INFORMATION
  Report Type: Spontaneous
  Country: JP (occurrence: JP)
  Receive Date: 20180118
  Receipt Date: 20180125
  Transmission Date: 20180509
  Serious: Yes (Other)
  Sender: FDA-Public Use
  Company Number: PHJP2018JP001122

PATIENT
  Age: 44 Year
  Sex: Male

DRUGS (3)
  1. NEORAL [Suspect]
     Active Substance: CYCLOSPORINE
     Indication: KIDNEY TRANSPLANT REJECTION
     Dosage: UNK
     Route: 048
  2. CELLCEPT [Suspect]
     Active Substance: MYCOPHENOLATE MOFETIL\MYCOPHENOLATE MOFETIL HYDROCHLORIDE
     Indication: RENAL TRANSPLANT
     Dosage: UNK
     Route: 048
  3. MEDROL [Concomitant]
     Active Substance: METHYLPREDNISOLONE
     Indication: PRODUCT USED FOR UNKNOWN INDICATION
     Dosage: UNK
     Route: 042

REACTIONS (1)
  - Ileus [Unknown]
